FAERS Safety Report 16356810 (Version 1)
Quarter: 2019Q2

REPORT INFORMATION
  Report Type: Spontaneous
  Country: GB (occurrence: GB)
  Receive Date: 20190527
  Receipt Date: 20190527
  Transmission Date: 20190711
  Serious: Yes (Other)
  Sender: FDA-Public Use
  Company Number: GB-009507513-1905GBR009784

PATIENT
  Age: 69 Year
  Sex: Female
  Weight: 79 kg

DRUGS (11)
  1. BECLOMETHASONE DIPROPIONATE [Concomitant]
     Active Substance: BECLOMETHASONE DIPROPIONATE
     Dosage: PUFFS INTO EACH NOSTRIL.
     Route: 045
     Dates: start: 20180530
  2. LOSARTAN POTASSIUM. [Suspect]
     Active Substance: LOSARTAN POTASSIUM
     Dosage: 25 MILLIGRAM, QD
     Route: 048
     Dates: start: 20180530
  3. TAMOXIFEN [Concomitant]
     Active Substance: TAMOXIFEN
     Dosage: 1 DOSAGE FORM, QD
     Dates: start: 20180530
  4. LANSOPRAZOLE. [Concomitant]
     Active Substance: LANSOPRAZOLE
     Dosage: MAXIMUM ONCE A DAY.
     Dates: start: 20180530
  5. FLOXACILLIN [Concomitant]
     Active Substance: FLUCLOXACILLIN
     Dosage: 4 DOSAGE FORM, QD
     Dates: start: 20180816, end: 20180823
  6. AMLODIPINE [Concomitant]
     Active Substance: AMLODIPINE BESYLATE
     Dosage: NOT TOLERATE HIGHER DOSE.
     Dates: start: 20180530
  7. QUININE [Concomitant]
     Active Substance: QUININE
     Indication: MUSCLE SPASMS
     Dosage: AT NIGHT.
     Dates: start: 20180625
  8. CLENIL MODULITE [Concomitant]
     Active Substance: BECLOMETHASONE DIPROPIONATE
     Dosage: 4 DOSAGE FORM, QD
     Route: 055
     Dates: start: 20180718, end: 20180906
  9. HYLO FORTE [Concomitant]
     Dosage: TO BOTH EYES.
     Route: 050
     Dates: start: 20180530
  10. CLOBETASONE BUTYRATE [Concomitant]
     Active Substance: CLOBETASONE BUTYRATE
     Dosage: APPLY
     Dates: start: 20180530
  11. FEXOFENADINE HYDROCHLORIDE. [Concomitant]
     Active Substance: FEXOFENADINE HYDROCHLORIDE
     Dosage: 1 DOSAGE FORM, QD
     Dates: start: 20180919

REACTIONS (3)
  - Skin reaction [Unknown]
  - Pruritus [Unknown]
  - Urticaria [Recovered/Resolved]

NARRATIVE: CASE EVENT DATE: 20181017
